FAERS Safety Report 18941713 (Version 1)
Quarter: 2021Q1

REPORT INFORMATION
  Report Type: Spontaneous
  Country: US (occurrence: US)
  Receive Date: 20210225
  Receipt Date: 20210225
  Transmission Date: 20210420
  Serious: Yes (Life-Threatening, Other)
  Sender: FDA-Public Use
  Company Number: US-BRACCO-2020US00979

PATIENT
  Age: 70 Year
  Sex: Male

DRUGS (1)
  1. ISOVUE [Suspect]
     Active Substance: IOPAMIDOL
     Indication: ANGIOCARDIOGRAM
     Dosage: 95 ML, SINGLE
     Route: 042
     Dates: start: 20200217, end: 20200217

REACTIONS (2)
  - Anaphylactic shock [Unknown]
  - Cardiac arrest [Unknown]

NARRATIVE: CASE EVENT DATE: 20200217
